FAERS Safety Report 25653738 (Version 3)
Quarter: 2025Q4

REPORT INFORMATION
  Report Type: Spontaneous
  Country: CH (occurrence: CH)
  Receive Date: 20250807
  Receipt Date: 20251009
  Transmission Date: 20260118
  Serious: Yes (Hospitalization, Other)
  Sender: TEVA
  Company Number: CH-TEVA-VS-3359636

PATIENT
  Age: 43 Year
  Sex: Male

DRUGS (5)
  1. CLOZAPINE [Suspect]
     Active Substance: CLOZAPINE
     Indication: Schizophrenia
     Dosage: RECEIVED FOR 20 YEARS
     Route: 065
  2. RISPERIDONE [Suspect]
     Active Substance: RISPERIDONE
     Indication: Schizophrenia
     Dosage: RECEIVED FOR 20 YEARS
     Route: 065
  3. OLANZAPINE [Suspect]
     Active Substance: OLANZAPINE
     Indication: Schizophrenia
     Route: 065
  4. IRON DEXTRAN [Concomitant]
     Active Substance: IRON DEXTRAN
     Indication: Supplementation therapy
     Dosage: IRON
     Route: 048
  5. OSELTAMIVIR [Concomitant]
     Active Substance: OSELTAMIVIR
     Indication: Influenza
     Route: 065

REACTIONS (3)
  - Cyanosis [Recovered/Resolved]
  - Arrhythmia [Unknown]
  - Drug ineffective [Unknown]
